FAERS Safety Report 8531869-7 (Version None)
Quarter: 2012Q3

REPORT INFORMATION
  Report Type: 
  Country: None (occurrence: None)
  Receive Date: 20120723
  Receipt Date: 20120712
  Transmission Date: 20120928
  Serious: Yes (Hospitalization, Disabling, Other)
  Sender: FDA-Public Use
  Company Number: US-009507513-1202USA02446

PATIENT

DRUGS (3)
  1. FOSAMAX [Suspect]
     Dosage: 10 MG, DAILY
     Route: 048
     Dates: start: 19950101, end: 20010101
  2. FOSAMAX [Suspect]
     Indication: OSTEOPENIA
     Dosage: 70 MG, QW
     Route: 048
     Dates: start: 20010101, end: 20080401
  3. MK-9278 [Concomitant]
     Dosage: UNK UNK, QD
     Dates: start: 19840101

REACTIONS (34)
  - SEDATION [None]
  - MUSCLE SPASMS [None]
  - HERPES SIMPLEX [None]
  - RHINITIS ALLERGIC [None]
  - FEMUR FRACTURE [None]
  - MUSCLE STRAIN [None]
  - RIB FRACTURE [None]
  - INSOMNIA [None]
  - IRRITABLE BOWEL SYNDROME [None]
  - SCAPULA FRACTURE [None]
  - LOW TURNOVER OSTEOPATHY [None]
  - DEPRESSION [None]
  - INTERVERTEBRAL DISC DEGENERATION [None]
  - CONTUSION [None]
  - CONSTIPATION [None]
  - TENDON DISORDER [None]
  - INTERVERTEBRAL DISC PROTRUSION [None]
  - GASTROOESOPHAGEAL REFLUX DISEASE [None]
  - UPPER RESPIRATORY TRACT INFECTION [None]
  - CARPAL TUNNEL SYNDROME [None]
  - LYMPHADENOPATHY [None]
  - ABDOMINAL PAIN [None]
  - POLYARTHRITIS [None]
  - ANXIETY [None]
  - HALLUCINATION [None]
  - FALL [None]
  - DRUG HYPERSENSITIVITY [None]
  - CERVICAL POLYPECTOMY [None]
  - DYSPNOEA [None]
  - BUNDLE BRANCH BLOCK RIGHT [None]
  - FAECALOMA [None]
  - DERMATITIS ALLERGIC [None]
  - BRONCHITIS [None]
  - PHARYNGITIS [None]
